FAERS Safety Report 18115664 (Version 4)
Quarter: 2020Q4

REPORT INFORMATION
  Report Type: Spontaneous
  Country: US (occurrence: US)
  Receive Date: 20200805
  Receipt Date: 20201118
  Transmission Date: 20210113
  Serious: Yes (Hospitalization, Other)
  Sender: FDA-Public Use
  Company Number: US-ASTRAZENECA-2020SE95600

PATIENT
  Age: 22521 Day
  Sex: Male
  Weight: 92.5 kg

DRUGS (97)
  1. LEVOFLOXACIN. [Concomitant]
     Active Substance: LEVOFLOXACIN
  2. SODIUM HYPOCHLORITE [Concomitant]
     Active Substance: SODIUM HYPOCHLORITE
  3. ASPIRIN. [Concomitant]
     Active Substance: ASPIRIN
  4. TETRACYCLINE [Concomitant]
     Active Substance: TETRACYCLINE
  5. RANITIDINE HYDROCHLORIDE. [Concomitant]
     Active Substance: RANITIDINE HYDROCHLORIDE
  6. NOVOLOG [Concomitant]
     Active Substance: INSULIN ASPART
  7. ATIVAN [Concomitant]
     Active Substance: LORAZEPAM
     Route: 065
     Dates: start: 20180308
  8. PHENERGAN [Concomitant]
     Active Substance: PROMETHAZINE HYDROCHLORIDE
  9. FARXIGA [Suspect]
     Active Substance: DAPAGLIFLOZIN PROPANEDIOL
     Indication: WEIGHT DECREASED
     Route: 048
     Dates: start: 20141201
  10. PROPOFOL. [Concomitant]
     Active Substance: PROPOFOL
  11. ESMOLOL [Concomitant]
     Active Substance: ESMOLOL HYDROCHLORIDE
  12. LINEZOLID. [Concomitant]
     Active Substance: LINEZOLID
  13. NAPROXEN-DIPHENHYDRAMINE [Concomitant]
  14. IMIPENEM [Concomitant]
     Active Substance: IMIPENEM
  15. CARAFATE [Concomitant]
     Active Substance: SUCRALFATE
     Route: 065
     Dates: start: 20131002
  16. PRAVASTATIN. [Concomitant]
     Active Substance: PRAVASTATIN
     Route: 065
     Dates: start: 20190321
  17. CYMBALTA [Concomitant]
     Active Substance: DULOXETINE HYDROCHLORIDE
  18. CLINORIL [Concomitant]
     Active Substance: SULINDAC
  19. ULTRAM [Concomitant]
     Active Substance: TRAMADOL HYDROCHLORIDE
  20. OXYCODONE [Concomitant]
     Active Substance: OXYCODONE
  21. FARXIGA [Suspect]
     Active Substance: DAPAGLIFLOZIN PROPANEDIOL
     Indication: BLOOD PRESSURE DECREASED
     Route: 048
     Dates: start: 20141201
  22. AMLODIPINE [Concomitant]
     Active Substance: AMLODIPINE BESYLATE
  23. MELOXICAM. [Concomitant]
     Active Substance: MELOXICAM
  24. LEVEMIR [Concomitant]
     Active Substance: INSULIN DETEMIR
  25. VANCOMYCIN [Concomitant]
     Active Substance: VANCOMYCIN
  26. PERCOCET [Concomitant]
     Active Substance: ACETAMINOPHEN\OXYCODONE HYDROCHLORIDE
  27. MORPHINE [Concomitant]
     Active Substance: MORPHINE
  28. SUCCINYLCHOLINE [Concomitant]
     Active Substance: SUCCINYLCHOLINE
  29. FLONASE [Concomitant]
     Active Substance: FLUTICASONE PROPIONATE
  30. SENNA [Concomitant]
     Active Substance: SENNA LEAF\SENNOSIDES\SENNOSIDES A AND B
  31. SIMETHICONE (DIMETHICONE) [Concomitant]
     Active Substance: DIMETHICONE
  32. ALEVE [Concomitant]
     Active Substance: NAPROXEN SODIUM
  33. A-HYDROCORT [Concomitant]
     Active Substance: HYDROCORTISONE SODIUM SUCCINATE
  34. FENTANYL. [Concomitant]
     Active Substance: FENTANYL
  35. MAGNESIUM CITRATE. [Concomitant]
     Active Substance: MAGNESIUM CITRATE
  36. ACYCLOVIR. [Concomitant]
     Active Substance: ACYCLOVIR
  37. AMARYL [Concomitant]
     Active Substance: GLIMEPIRIDE
  38. RELAFEN [Concomitant]
     Active Substance: NABUMETONE
  39. FARXIGA [Suspect]
     Active Substance: DAPAGLIFLOZIN PROPANEDIOL
     Indication: DIABETES MELLITUS
     Route: 048
     Dates: start: 20140714, end: 20141201
  40. CYCLOBENZAPRINE. [Concomitant]
     Active Substance: CYCLOBENZAPRINE
  41. NEOSTIGMINE. [Concomitant]
     Active Substance: NEOSTIGMINE METHYLSULFATE
  42. CLINDAMYCIN. [Concomitant]
     Active Substance: CLINDAMYCIN
  43. SODIUM CHLORIDE. [Concomitant]
     Active Substance: SODIUM CHLORIDE
  44. NEOMYCIN-POLYMYXIN [Concomitant]
  45. TYLENOL [Concomitant]
     Active Substance: ACETAMINOPHEN
  46. ARGININE-GLUTAMINE-CALCIUM [Concomitant]
  47. CHERATUSSIN [Concomitant]
     Active Substance: AMMONIUM CHLORIDE\DEXTROMETHORPHAN\SODIUM CITRATE
     Route: 065
     Dates: start: 20111014
  48. PRILOSEC [Concomitant]
     Active Substance: OMEPRAZOLE MAGNESIUM
     Route: 065
     Dates: start: 20131002
  49. VIOXX [Concomitant]
     Active Substance: ROFECOXIB
  50. SOMA [Concomitant]
     Active Substance: CARISOPRODOL
  51. HYDROCHLOROTHIAZIDE. [Concomitant]
     Active Substance: HYDROCHLOROTHIAZIDE
  52. POLYETHYLENE GLYCOL [Concomitant]
     Active Substance: POLYETHYLENE GLYCOLS
  53. MIDAZOLAM. [Concomitant]
     Active Substance: MIDAZOLAM
  54. DOXYCYCLINE. [Concomitant]
     Active Substance: DOXYCYCLINE
  55. COLLAGENASE CLOSTRIDIUM HIST [Concomitant]
  56. FLEXERIL [Concomitant]
     Active Substance: CYCLOBENZAPRINE HYDROCHLORIDE
     Route: 065
     Dates: start: 20111014
  57. ESCITALOPRAM [Concomitant]
     Active Substance: ESCITALOPRAM OXALATE
     Route: 065
     Dates: start: 20190221
  58. LYRICA [Concomitant]
     Active Substance: PREGABALIN
  59. FARXIGA [Suspect]
     Active Substance: DAPAGLIFLOZIN PROPANEDIOL
     Indication: DIABETES MELLITUS
     Route: 048
     Dates: start: 20141201
  60. FARXIGA [Suspect]
     Active Substance: DAPAGLIFLOZIN PROPANEDIOL
     Indication: TYPE 2 DIABETES MELLITUS
     Route: 048
     Dates: start: 20140714, end: 20141201
  61. FARXIGA [Suspect]
     Active Substance: DAPAGLIFLOZIN PROPANEDIOL
     Indication: WEIGHT DECREASED
     Route: 048
     Dates: start: 20140714, end: 20141201
  62. DEXAMETHASONE. [Concomitant]
     Active Substance: DEXAMETHASONE
  63. PHENYLEPHRINE [Concomitant]
     Active Substance: PHENYLEPHRINE HYDROCHLORIDE
  64. GABAPENTIN. [Concomitant]
     Active Substance: GABAPENTIN
  65. GUAIFENESIN. [Concomitant]
     Active Substance: GUAIFENESIN
  66. TOUJEO [Concomitant]
     Active Substance: INSULIN GLARGINE
  67. LORATADINE. [Concomitant]
     Active Substance: LORATADINE
  68. ZOFRAN [Concomitant]
     Active Substance: ONDANSETRON HYDROCHLORIDE
  69. GENTAMYCIN [Concomitant]
     Active Substance: GENTAMICIN
  70. ZOVIRAX [Concomitant]
     Active Substance: ACYCLOVIR
     Route: 065
     Dates: start: 20111014
  71. MEDROL [Concomitant]
     Active Substance: METHYLPREDNISOLONE
  72. NAPROSYN [Concomitant]
     Active Substance: NAPROXEN
  73. FARXIGA [Suspect]
     Active Substance: DAPAGLIFLOZIN PROPANEDIOL
     Indication: BLOOD PRESSURE DECREASED
     Route: 048
     Dates: start: 20140714, end: 20141201
  74. NEBIVOLOL. [Concomitant]
     Active Substance: NEBIVOLOL
  75. CLONIDINE. [Concomitant]
     Active Substance: CLONIDINE
  76. LORCET [Concomitant]
     Active Substance: ACETAMINOPHEN\HYDROCODONE BITARTRATE
  77. HEPARIN [Concomitant]
     Active Substance: HEPARIN SODIUM
  78. NALOXONE [Concomitant]
     Active Substance: NALOXONE
  79. DAPTOMYCIN. [Concomitant]
     Active Substance: DAPTOMYCIN
  80. VITAMIN A [Concomitant]
     Active Substance: VITAMIN A
  81. IBUPROFEN. [Concomitant]
     Active Substance: IBUPROFEN
  82. LODENE [Concomitant]
  83. FARXIGA [Suspect]
     Active Substance: DAPAGLIFLOZIN PROPANEDIOL
     Indication: TYPE 2 DIABETES MELLITUS
     Route: 048
     Dates: start: 20141201
  84. PANTOPRAZOLE [Concomitant]
     Active Substance: PANTOPRAZOLE
  85. XANAX [Concomitant]
     Active Substance: ALPRAZOLAM
  86. METFORMIN [Concomitant]
     Active Substance: METFORMIN HYDROCHLORIDE
  87. ARGININE [Concomitant]
     Active Substance: ARGININE
  88. GLYCOPYRROLATE. [Concomitant]
     Active Substance: GLYCOPYRROLATE
  89. STREPTOMYCIN [Concomitant]
     Active Substance: STREPTOMYCIN SULFATE
  90. ZESTRIL [Concomitant]
     Active Substance: LISINOPRIL
  91. VITAMIN C [Concomitant]
     Active Substance: ASCORBIC ACID
  92. ZINC. [Concomitant]
     Active Substance: ZINC
  93. LACTATED RINGERS SOLUTION [Concomitant]
     Active Substance: CALCIUM CHLORIDE\POTASSIUM CHLORIDE\SODIUM CHLORIDE\SODIUM LACTATE
  94. DOCUSATE SODIUM. [Concomitant]
     Active Substance: DOCUSATE SODIUM
  95. PIPERACILLIN. [Concomitant]
     Active Substance: PIPERACILLIN SODIUM
  96. TOBRAMYCIN. [Concomitant]
     Active Substance: TOBRAMYCIN
  97. MAGNESIUM OXIDE. [Concomitant]
     Active Substance: MAGNESIUM OXIDE

REACTIONS (19)
  - Hypokalaemia [Unknown]
  - Hypertension [Unknown]
  - Groin abscess [Unknown]
  - Laryngeal cancer [Unknown]
  - Fournier^s gangrene [Unknown]
  - Intervertebral disc degeneration [Unknown]
  - Scrotal abscess [Unknown]
  - Obesity [Unknown]
  - Deep vein thrombosis [Unknown]
  - Anion gap increased [Unknown]
  - Type 2 diabetes mellitus [Unknown]
  - Hyponatraemia [Unknown]
  - Perineal abscess [Unknown]
  - Back disorder [Unknown]
  - Pituitary-dependent Cushing^s syndrome [Unknown]
  - Subcutaneous abscess [Unknown]
  - Asthenia [Unknown]
  - Sepsis [Unknown]
  - Osteochondrosis [Unknown]

NARRATIVE: CASE EVENT DATE: 20140714
